FAERS Safety Report 23177118 (Version 2)
Quarter: 2023Q4

REPORT INFORMATION
  Report Type: Report from Study
  Country: US (occurrence: US)
  Receive Date: 20231113
  Receipt Date: 20231115
  Transmission Date: 20240110
  Serious: Yes (Other)
  Sender: FDA-Public Use
  Company Number: US-MYLANLABS-2023M1069680

PATIENT
  Sex: Female
  Weight: 69 kg

DRUGS (2)
  1. GLATIRAMER ACETATE [Suspect]
     Active Substance: GLATIRAMER ACETATE
     Indication: Relapsing-remitting multiple sclerosis
     Dosage: 40 MILLIGRAM, 3XW
     Route: 058
  2. GLATIRAMER ACETATE [Suspect]
     Active Substance: GLATIRAMER ACETATE
     Indication: Radiologically isolated syndrome
     Dosage: 40 MILLIGRAM, 3XW
     Route: 058

REACTIONS (6)
  - Multiple sclerosis [Unknown]
  - Paraesthesia [Unknown]
  - Injection site pain [Unknown]
  - Injection site erythema [Unknown]
  - Off label use [Unknown]
  - Therapy cessation [Unknown]
